FAERS Safety Report 23842312 (Version 1)
Quarter: 2024Q2

REPORT INFORMATION
  Report Type: Spontaneous
  Country: US (occurrence: None)
  Receive Date: 20240509
  Receipt Date: 20240509
  Transmission Date: 20240716
  Serious: Yes (unspecified)
  Sender: FDA-Public Use
  Company Number: None

PATIENT
  Age: 39 Year
  Sex: Female
  Weight: 127.35 kg

DRUGS (1)
  1. RUXIENCE [Suspect]
     Active Substance: RITUXIMAB-PVVR
     Indication: Arteritis
     Dosage: OTHER FREQUENCY : DAY 0, 2WKS Q 6 MO;?
     Route: 042
     Dates: start: 20240508

REACTIONS (1)
  - Throat irritation [None]

NARRATIVE: CASE EVENT DATE: 20240508
